FAERS Safety Report 8172875-4 (Version None)
Quarter: 2012Q1

REPORT INFORMATION
  Report Type: 
  Country: None (occurrence: None)
  Receive Date: 20120229
  Receipt Date: 20120229
  Transmission Date: 20120608
  Serious: Yes (Hospitalization)
  Sender: FDA-Public Use
  Company Number: None

PATIENT
  Sex: Female
  Weight: 102.05 kg

DRUGS (4)
  1. VIMPAT [Suspect]
     Indication: FRONTAL LOBE EPILEPSY
     Dosage: 200.0 MG
     Route: 048
  2. FLEXERIL [Concomitant]
  3. NEUTONTIN [Concomitant]
  4. VICODIN [Concomitant]

REACTIONS (1)
  - CEREBROVASCULAR ACCIDENT [None]
